FAERS Safety Report 11867715 (Version 4)
Quarter: 2016Q1

REPORT INFORMATION
  Report Type: Spontaneous
  Country: JP (occurrence: JP)
  Receive Date: 20151224
  Receipt Date: 20160225
  Transmission Date: 20160526
  Serious: Yes (Death, Other)
  Sender: FDA-Public Use
  Company Number: JP-GILEAD-2015-0188779

PATIENT
  Age: 71 Year
  Sex: Female
  Weight: 60.3 kg

DRUGS (12)
  1. ASPARA POTASSIUM [Concomitant]
     Active Substance: POTASSIUM ASPARTATE
     Dosage: 100 MG, THREE TIMES A DAY
     Route: 048
     Dates: start: 20150602
  2. ACINON                             /00867001/ [Concomitant]
     Dosage: 150 MG, TWICE A DAY, AFTER BREAKFAST AND DINNER
     Route: 048
     Dates: start: 20150602
  3. LIVACT                             /00847901/ [Concomitant]
     Active Substance: ISOLEUCINE\LEUCINE\VALINE
     Dosage: 4.15 G, 1 SACHET IN THE MORNING, 2 SACHETS IN THE EVENING
     Route: 048
  4. COPEGUS [Concomitant]
     Active Substance: RIBAVIRIN
     Indication: HEPATITIS C
  5. NORVASC [Concomitant]
     Active Substance: AMLODIPINE BESYLATE
     Indication: HYPERTENSION
     Dosage: 5 MG, QD
     Route: 048
  6. SOVALDI [Suspect]
     Active Substance: SOFOSBUVIR
     Indication: HEPATIC CIRRHOSIS
     Dosage: UNK
     Route: 048
     Dates: start: 20150623
  7. COPEGUS [Concomitant]
     Active Substance: RIBAVIRIN
     Indication: HEPATIC CIRRHOSIS
     Dosage: 600 MG, UNK
     Route: 048
     Dates: start: 20150623
  8. PROMAC                             /00024401/ [Concomitant]
     Active Substance: NITROFURANTOIN
     Dosage: 2 DF, TWICE A DAY, AFTER BREAKFAST AND DINNER
     Route: 048
     Dates: start: 20150602
  9. SOVALDI [Suspect]
     Active Substance: SOFOSBUVIR
     Indication: HEPATITIS C
  10. URSO [Concomitant]
     Active Substance: URSODIOL
     Dosage: 200 MG, THREE TIMES A DAY, AFTER EVERY MEAL
     Route: 048
     Dates: start: 20150602
  11. KAYTWO [Concomitant]
     Active Substance: MENATETRENONE
     Dosage: 5 MG, THREE TIMES A DAY
     Route: 048
     Dates: start: 20150602
  12. CALORYL [Concomitant]
     Dosage: 1 DF, THREE TIMES A DAY, AFTER BREAKFAST, LUNCH AND DINNER
     Route: 048
     Dates: start: 20150602

REACTIONS (2)
  - Aortic dissection [Fatal]
  - Death [Fatal]

NARRATIVE: CASE EVENT DATE: 20150718
